FAERS Safety Report 21444561 (Version 4)
Quarter: 2023Q1

REPORT INFORMATION
  Report Type: Spontaneous
  Country: AT (occurrence: AT)
  Receive Date: 20221012
  Receipt Date: 20230209
  Transmission Date: 20230417
  Serious: Yes (Hospitalization)
  Sender: FDA-Public Use
  Company Number: AT-JNJFOC-20220114852

PATIENT
  Age: 54 Year
  Sex: Male
  Weight: 110 kg

DRUGS (2)
  1. DARZALEX [Suspect]
     Active Substance: DARATUMUMAB
     Indication: Immune thrombocytopenia
     Dosage: 16 MG/KG WEEK 1-8 WEEKLY, THEN 2- WEEKLY PROBABLY FOR 6 MONTHS IN TOTAL)
     Route: 042
     Dates: start: 20220112
  2. DARZALEX [Suspect]
     Active Substance: DARATUMUMAB
     Dosage: 16 MG/KG WEEK 1-8 WEEKLY, THEN 2- WEEKLY PROBABLY FOR 6 MONTHS IN TOTAL)
     Route: 042

REACTIONS (4)
  - Angina pectoris [Recovered/Resolved]
  - Infusion related reaction [Unknown]
  - Off label use [Unknown]
  - Product use in unapproved indication [Unknown]

NARRATIVE: CASE EVENT DATE: 20220112
